FAERS Safety Report 15316657 (Version 2)
Quarter: 2019Q1

REPORT INFORMATION
  Report Type: Report from Study
  Country: FR (occurrence: FR)
  Receive Date: 20180824
  Receipt Date: 20190116
  Transmission Date: 20190417
  Serious: Yes (Hospitalization)
  Sender: FDA-Public Use
  Company Number: FR-PFIZER INC-2018339698

PATIENT
  Age: 71 Year
  Sex: Male
  Weight: 78 kg

DRUGS (25)
  1. GEMCITABINE HYDROCHLORIDE. [Suspect]
     Active Substance: GEMCITABINE HYDROCHLORIDE
     Dosage: 1520 MG, UNK
     Dates: start: 20180504, end: 20180504
  2. GEMCITABINE HYDROCHLORIDE. [Suspect]
     Active Substance: GEMCITABINE HYDROCHLORIDE
     Dosage: 1500 MG, UNK
     Dates: start: 20180525, end: 20180525
  3. CISPLATIN. [Suspect]
     Active Substance: CISPLATIN
     Dosage: 140 MG, UNK
     Dates: start: 20180316, end: 20180316
  4. VITAMIN B1 AND B6 [Concomitant]
     Active Substance: PYRIDOXINE HYDROCHLORIDE\THIAMINE HYDROCHLORIDE
     Dosage: UNK
  5. AVELUMAB [Suspect]
     Active Substance: AVELUMAB
     Dosage: 820 MG, UNK
     Dates: start: 20180518, end: 20180518
  6. GEMCITABINE HYDROCHLORIDE. [Suspect]
     Active Substance: GEMCITABINE HYDROCHLORIDE
     Dosage: 1480 MG, UNK
     Dates: start: 20180615, end: 20180615
  7. AVELUMAB [Suspect]
     Active Substance: AVELUMAB
     Dosage: 860 MG, UNK
     Dates: start: 20180405, end: 20180405
  8. GEMCITABINE HYDROCHLORIDE. [Suspect]
     Active Substance: GEMCITABINE HYDROCHLORIDE
     Dosage: 1520 MG, UNK
     Dates: start: 20180427, end: 20180427
  9. CARBOPLATIN. [Suspect]
     Active Substance: CARBOPLATIN
     Dosage: 320 MG, UNK
     Dates: start: 20180427, end: 20180427
  10. CARBOPLATIN. [Suspect]
     Active Substance: CARBOPLATIN
     Dosage: 250 MG, UNK
     Dates: start: 20180615, end: 20180615
  11. INNOHEP [Concomitant]
     Active Substance: TINZAPARIN SODIUM
     Indication: PULMONARY EMBOLISM
     Dosage: UNK
  12. ERYTHROPOIETIN [Concomitant]
     Active Substance: ERYTHROPOIETIN
     Dosage: UNK
  13. GEMCITABINE HYDROCHLORIDE. [Suspect]
     Active Substance: GEMCITABINE HYDROCHLORIDE
     Dosage: 1520 MG, UNK
     Dates: start: 20180413, end: 20180413
  14. GEMCITABINE HYDROCHLORIDE. [Suspect]
     Active Substance: GEMCITABINE HYDROCHLORIDE
     Dosage: 1460 MG, UNK
     Dates: start: 20180622, end: 20180622
  15. CARBOPLATIN. [Suspect]
     Active Substance: CARBOPLATIN
     Dosage: 390 MG, UNK
     Dates: start: 20180518, end: 20180518
  16. AVELUMAB [Suspect]
     Active Substance: AVELUMAB
     Dosage: 790 MG, UNK
     Dates: start: 20180615, end: 20180615
  17. GEMCITABINE HYDROCHLORIDE. [Suspect]
     Active Substance: GEMCITABINE HYDROCHLORIDE
     Dosage: 2040 MG, UNK
     Dates: start: 20180316, end: 20180316
  18. AVELUMAB [Suspect]
     Active Substance: AVELUMAB
     Dosage: 850 MG, UNK
     Dates: start: 20180427, end: 20180427
  19. GEMCITABINE HYDROCHLORIDE. [Suspect]
     Active Substance: GEMCITABINE HYDROCHLORIDE
     Dosage: 1520 MG, UNK
     Dates: start: 20180518, end: 20180518
  20. AVELUMAB [Suspect]
     Active Substance: AVELUMAB
     Dosage: 860 MG, UNK
     Dates: start: 20180316, end: 20180316
  21. GEMCITABINE HYDROCHLORIDE. [Suspect]
     Active Substance: GEMCITABINE HYDROCHLORIDE
     Dosage: 2080 MG, UNK
     Dates: start: 20180323, end: 20180323
  22. GEMCITABINE HYDROCHLORIDE. [Suspect]
     Active Substance: GEMCITABINE HYDROCHLORIDE
     Dosage: 1530 MG, UNK
     Dates: start: 20180405, end: 20180405
  23. CARBOPLATIN. [Suspect]
     Active Substance: CARBOPLATIN
     Dosage: 340 MG, UNK
     Dates: start: 20180405, end: 20180405
  24. AMLOR [Concomitant]
     Active Substance: AMLODIPINE BESYLATE
     Dosage: UNK
  25. ZOPHREN [ONDANSETRON HYDROCHLORIDE] [Concomitant]
     Active Substance: ONDANSETRON
     Dosage: UNK

REACTIONS (3)
  - Vomiting [Recovered/Resolved]
  - Renal failure [Not Recovered/Not Resolved]
  - Nausea [Recovered/Resolved]

NARRATIVE: CASE EVENT DATE: 20180625
